FAERS Safety Report 8801260 (Version 1)
Quarter: 2012Q4

REPORT INFORMATION
  Report Type: 
  Country: FR (occurrence: FR)
  Receive Date: 20120921
  Receipt Date: 20120921
  Transmission Date: 20130627
  Serious: Yes (Hospitalization, Other)
  Sender: FDA-Public Use
  Company Number: FR-PFIZER INC-2012227555

PATIENT
  Age: 74 Year
  Sex: Female

DRUGS (7)
  1. ZITHROMAX [Suspect]
     Indication: OROPHARYNGEAL PAIN
     Dosage: 500 mg, 1x/day
     Route: 048
     Dates: start: 20120215, end: 20120227
  2. CLARITYNE [Suspect]
     Indication: URTICARIA
     Dosage: UNK
     Route: 048
     Dates: start: 20120215
  3. ENOXACIN [Suspect]
     Indication: DYSURIA
     Dosage: 1 DF, single
     Route: 048
     Dates: start: 20120227, end: 20120227
  4. EZETIMIBE/SIMVASTATIN [Concomitant]
     Dosage: UNK
     Route: 048
  5. TAREG [Concomitant]
     Dosage: 1 DF, 1x/day
     Route: 048
  6. FOSAMAX [Concomitant]
     Dosage: 1 DF, weekly
     Route: 048
  7. STILNOX [Concomitant]
     Dosage: 10 mg, 1x/day
     Route: 048

REACTIONS (5)
  - Torsade de pointes [Recovered/Resolved]
  - Ventricular tachycardia [Recovered/Resolved]
  - Loss of consciousness [Recovered/Resolved]
  - Syncope [Recovered/Resolved]
  - Dysuria [Recovered/Resolved]
